FAERS Safety Report 15338193 (Version 1)
Quarter: 2018Q4

REPORT INFORMATION
  Report Type: Spontaneous
  Country: CH (occurrence: CH)
  Receive Date: 20180831
  Receipt Date: 20180831
  Transmission Date: 20190204
  Serious: Yes (Hospitalization)
  Sender: FDA-Public Use
  Company Number: CH-BAYER-2018-158950

PATIENT
  Age: 92 Year
  Sex: Female

DRUGS (10)
  1. BETASERC [Concomitant]
     Active Substance: BETAHISTINE
     Dosage: 48 MG, BID
     Route: 048
  2. ENALAPRIL [Suspect]
     Active Substance: ENALAPRIL
     Dosage: 5 MG, BID
     Route: 048
  3. SPIRIVA [Concomitant]
     Active Substance: TIOTROPIUM BROMIDE MONOHYDRATE
     Dosage: 18 ?G, QD
     Route: 055
  4. METOJECT [Suspect]
     Active Substance: METHOTREXATE SODIUM
     Indication: ERYTHRODERMIC PSORIASIS
     Dosage: 10 MG, OW
     Route: 058
     Dates: start: 2017
  5. NEXIUM-MUPS /01479302/ [Suspect]
     Active Substance: ESOMEPRAZOLE MAGNESIUM
     Dosage: 20 MG, QD
     Route: 048
  6. REMERON [Concomitant]
     Active Substance: MIRTAZAPINE
     Dosage: 30 MG, QD
     Route: 048
  7. SYMBICORT [Concomitant]
     Active Substance: BUDESONIDE\FORMOTEROL FUMARATE DIHYDRATE
     Dosage: BID
     Route: 055
  8. ASPIRIN CARDIO 100 MG [Suspect]
     Active Substance: ASPIRIN
     Indication: EMBOLIC STROKE
     Dosage: 100 MG, QD
     Route: 048
  9. ATORVASTATIN [Suspect]
     Active Substance: ATORVASTATIN
     Dosage: 40 MG, QD
     Route: 048
  10. XANAX [Concomitant]
     Active Substance: ALPRAZOLAM
     Dosage: 75 MG, QD
     Route: 048

REACTIONS (1)
  - Eosinophilic colitis [Not Recovered/Not Resolved]

NARRATIVE: CASE EVENT DATE: 201803
